FAERS Safety Report 15991076 (Version 4)
Quarter: 2020Q1

REPORT INFORMATION
  Report Type: Report from Study
  Country: JP (occurrence: JP)
  Receive Date: 20190221
  Receipt Date: 20200210
  Transmission Date: 20200409
  Serious: Yes (Death, Hospitalization, Other)
  Sender: FDA-Public Use
  Company Number: JP-ASTELLAS-2019JP000369

PATIENT
  Age: 16 Year
  Sex: Female
  Weight: 43 kg

DRUGS (36)
  1. ASP2215 [Suspect]
     Active Substance: GILTERITINIB
     Indication: ACUTE MYELOID LEUKAEMIA RECURRENT
     Route: 048
     Dates: start: 20181212, end: 20190107
  2. ASP2215 [Suspect]
     Active Substance: GILTERITINIB
     Route: 048
     Dates: start: 20190201, end: 20190206
  3. ASP2215 [Suspect]
     Active Substance: GILTERITINIB
     Route: 048
     Dates: start: 20190108, end: 20190117
  4. CANCIDAS [Concomitant]
     Active Substance: CASPOFUNGIN ACETATE
     Indication: ASPERGILLUS INFECTION
     Dosage: 50 MG/DAY, UNKNOWN FREQ.
     Route: 065
     Dates: start: 20190125, end: 20190206
  5. CANDESARTAN. [Concomitant]
     Active Substance: CANDESARTAN
     Indication: PROPHYLAXIS
     Dosage: 4 MG/DAY, UNKNOWN FREQ.
     Route: 048
  6. FUROSEMIDE. [Concomitant]
     Active Substance: FUROSEMIDE
     Indication: CHRONIC GRAFT VERSUS HOST DISEASE
     Dosage: 40 MG/DAY, UNKNOWN FREQ.
     Route: 065
  7. LOPERAMIDE [Concomitant]
     Active Substance: LOPERAMIDE
     Indication: DIARRHOEA
     Dosage: 1 MG/DAY, UNKNOWN FREQ.
     Route: 048
     Dates: start: 20181215, end: 20190108
  8. AMBISOME [Concomitant]
     Active Substance: AMPHOTERICIN B
     Indication: ASPERGILLUS INFECTION
     Dosage: 150 MG/DAY, UNKNOWN FREQ.
     Route: 065
     Dates: start: 20190115, end: 20190123
  9. OXYCODONE [Concomitant]
     Active Substance: OXYCODONE
     Indication: NEUROPATHY PERIPHERAL
     Dosage: 40 MG/DAY, UNKNOWN FREQ.
     Route: 048
  10. BAKTAR [Concomitant]
     Active Substance: SULFAMETHOXAZOLE\TRIMETHOPRIM
     Indication: PROPHYLAXIS
     Dosage: 6 TABLETS/WEEK, UNKNOWN FREQ.
     Route: 048
  11. LANDSEN [Concomitant]
     Active Substance: CLONAZEPAM
     Indication: NEUROPATHY PERIPHERAL
     Dosage: 0.5 MG/DAY, UNKNOWN FREQ.
     Route: 048
     Dates: start: 20181212, end: 20190206
  12. FILGRASTIM [Concomitant]
     Active Substance: FILGRASTIM
     Indication: FEBRILE NEUTROPENIA
     Dosage: 150 ?G/DAY, UNKNOWN FREQ.
     Route: 065
     Dates: start: 20181227, end: 20190111
  13. CATABON [Concomitant]
     Active Substance: DOPAMINE HYDROCHLORIDE
     Indication: PRODUCT USED FOR UNKNOWN INDICATION
     Dosage: 3 GAMMAS, UNKNOWN FREQ.
     Route: 065
     Dates: start: 20190125, end: 20190130
  14. VORICONAZOLE. [Concomitant]
     Active Substance: VORICONAZOLE
     Indication: PRODUCT USED FOR UNKNOWN INDICATION
     Dosage: UNK UNK, UNKNOWN FREQ.
     Route: 048
  15. PREDONINE [PREDNISOLONE ACETATE] [Concomitant]
     Active Substance: PREDNISOLONE ACETATE
     Indication: CHRONIC GRAFT VERSUS HOST DISEASE
     Dosage: 7.5 MG/DAY, UNKNOWN FREQ.
     Route: 065
  16. FEBURIC [Concomitant]
     Active Substance: FEBUXOSTAT
     Indication: PROPHYLAXIS
     Dosage: 20 MG/DAY, UNKNOWN FREQ.
     Route: 048
     Dates: start: 20181231, end: 20190104
  17. MINOCYCLINE HYDROCHLORIDE. [Concomitant]
     Active Substance: MINOCYCLINE HYDROCHLORIDE
     Indication: ASPERGILLUS INFECTION
     Dosage: 200 MG/DAY, UNKNOWN FREQ.
     Route: 065
     Dates: start: 20190117, end: 20190129
  18. SHAKUYAKUKANZOTO [Concomitant]
     Active Substance: HERBALS
     Indication: NEUROPATHY PERIPHERAL
     Dosage: 7.5 G/DAY, UNKNOWN FREQ.
     Route: 048
  19. PROGRAF [Concomitant]
     Active Substance: TACROLIMUS
     Indication: CHRONIC GRAFT VERSUS HOST DISEASE
     Dosage: 0.4 MG/DAY, UNKNOWN FREQ.
     Route: 048
  20. LYRICA [Concomitant]
     Active Substance: PREGABALIN
     Indication: NEUROPATHY PERIPHERAL
     Dosage: 300 MG/DAY, UNKNOWN FREQ.
     Route: 048
  21. MEROPENEM. [Concomitant]
     Active Substance: MEROPENEM
     Dosage: 3 G/DAY, UNKNOWN FREQ.
     Route: 065
     Dates: start: 20190124, end: 20190206
  22. FUNGUARD [Concomitant]
     Active Substance: MICAFUNGIN SODIUM
     Indication: PROPHYLAXIS
     Dosage: 50 MG/DAY, UNKNOWN FREQ.
     Route: 065
  23. STARASID [Concomitant]
     Active Substance: CYTARABINE OCFOSFATE
     Indication: ACUTE MYELOID LEUKAEMIA
     Dosage: 150 MG/DAY, UNKNOWN FREQ.
     Route: 048
     Dates: start: 20190111, end: 20190205
  24. ASP2215 [Suspect]
     Active Substance: GILTERITINIB
     Route: 048
     Dates: start: 20190118, end: 20190130
  25. VALIXA [Concomitant]
     Active Substance: VALGANCICLOVIR
     Indication: PROPHYLAXIS
     Dosage: 450 MG/DAY, UNKNOWN FREQ.
     Route: 048
  26. WYPAX [Concomitant]
     Active Substance: LORAZEPAM
     Indication: NEUROPATHY PERIPHERAL
     Dosage: 0.5 MG/DAY, UNKNOWN FREQ.
     Route: 048
  27. BILANOA [Concomitant]
     Active Substance: BILASTINE
     Indication: NEUROPATHY PERIPHERAL
     Dosage: 20 MG/DAY, UNKNOWN FREQ.
     Route: 048
  28. MEROPENEM. [Concomitant]
     Active Substance: MEROPENEM
     Indication: PROPHYLAXIS
     Dosage: 3 G/DAY, UNKNOWN FREQ.
     Route: 065
  29. LEVOFLOXACIN HEMIHYDRATE [Concomitant]
     Active Substance: LEVOFLOXACIN
     Indication: FEBRILE NEUTROPENIA
     Dosage: 500 MG/DAY, UNKNOWN FREQ.
     Route: 065
     Dates: start: 20181221, end: 20190123
  30. FEBURIC [Concomitant]
     Active Substance: FEBUXOSTAT
     Dosage: 20 MG/DAY, UNKNOWN FREQ.
     Route: 048
     Dates: start: 20190127, end: 20190206
  31. VFEND [Concomitant]
     Active Substance: VORICONAZOLE
     Indication: ASPERGILLUS INFECTION
     Dosage: 400 MG/DAY, UNKNOWN FREQ.
     Route: 048
     Dates: start: 20190111, end: 20190206
  32. URSO [Concomitant]
     Active Substance: URSODIOL
     Indication: CHRONIC GRAFT VERSUS HOST DISEASE
     Dosage: 600 MG/DAY, UNKNOWN FREQ.
     Route: 048
  33. ELNEOPA NF NO.1 [Concomitant]
     Indication: NUTRITIONAL SUPPLEMENTATION
     Dosage: 720 ML/DAY, UNKNOWN FREQ.
     Route: 065
  34. TEICOPLANIN [Concomitant]
     Active Substance: TEICOPLANIN
     Indication: PROPHYLAXIS
     Dosage: 400 MG/DAY, UNKNOWN FREQ.
     Route: 065
  35. REMITCH [Concomitant]
     Active Substance: NALFURAFINE HYDROCHLORIDE
     Indication: NEUROPATHY PERIPHERAL
     Dosage: 2.5 ?G/DAY, UNKNOWN FREQ.
     Route: 048
     Dates: start: 20181214, end: 20190116
  36. POLARAMINE [Concomitant]
     Active Substance: DEXCHLORPHENIRAMINE MALEATE
     Indication: NEUROPATHY PERIPHERAL
     Dosage: 2 MG/DAY, UNKNOWN FREQ.
     Route: 048
     Dates: start: 20181230, end: 20190108

REACTIONS (8)
  - Electrocardiogram QT prolonged [Recovered/Resolved]
  - Intestinal haemorrhage [Fatal]
  - Lower gastrointestinal haemorrhage [Not Recovered/Not Resolved]
  - Aspergillus infection [Recovering/Resolving]
  - Blood creatine phosphokinase increased [Recovered/Resolved]
  - Febrile neutropenia [Recovering/Resolving]
  - Aspartate aminotransferase increased [Not Recovered/Not Resolved]
  - Diarrhoea [Recovering/Resolving]

NARRATIVE: CASE EVENT DATE: 20181215
